FAERS Safety Report 17494311 (Version 1)
Quarter: 2020Q1

REPORT INFORMATION
  Report Type: Spontaneous
  Country: US (occurrence: US)
  Receive Date: 20200304
  Receipt Date: 20200304
  Transmission Date: 20200409
  Serious: Yes (Hospitalization)
  Sender: FDA-Public Use
  Company Number: US-MYLANLABS-2020M1023927

PATIENT
  Age: 14 Year
  Sex: Male

DRUGS (4)
  1. CITALOPRAM [Interacting]
     Active Substance: CITALOPRAM HYDROBROMIDE
     Indication: ANXIETY
  2. ARIPIPRAZOLE. [Interacting]
     Active Substance: ARIPIPRAZOLE
     Indication: ANXIETY
  3. ARIPIPRAZOLE. [Suspect]
     Active Substance: ARIPIPRAZOLE
     Indication: DEPRESSION
     Dosage: 5MG ONCE DAILY,  HE INGESTED 20 TABLETS AT ONCE.
     Route: 048
  4. CITALOPRAM [Interacting]
     Active Substance: CITALOPRAM HYDROBROMIDE
     Indication: DEPRESSION
     Dosage: UNK
     Route: 048

REACTIONS (12)
  - Dystonia [Recovered/Resolved]
  - Sinus tachycardia [Unknown]
  - Bundle branch block left [Unknown]
  - Hypocalcaemia [Unknown]
  - Drug interaction [Unknown]
  - Electrocardiogram QRS complex prolonged [Recovering/Resolving]
  - Electrocardiogram QT prolonged [Unknown]
  - Intentional product misuse [Unknown]
  - Intentional overdose [Unknown]
  - Hypokalaemia [Unknown]
  - Somnolence [Recovered/Resolved]
  - Hypomagnesaemia [Unknown]
